FAERS Safety Report 11991412 (Version 8)
Quarter: 2018Q1

REPORT INFORMATION
  Report Type: Spontaneous
  Country: US (occurrence: US)
  Receive Date: 20160203
  Receipt Date: 20180312
  Transmission Date: 20180508
  Serious: No
  Sender: FDA-Public Use
  Company Number: US-JNJFOC-20160106744

PATIENT
  Age: 8 Year
  Sex: Male

DRUGS (44)
  1. INVEGA [Suspect]
     Active Substance: PALIPERIDONE
     Indication: ABNORMAL BEHAVIOUR
     Route: 048
     Dates: start: 20100412, end: 20100913
  2. INVEGA [Suspect]
     Active Substance: PALIPERIDONE
     Indication: OPPOSITIONAL DEFIANT DISORDER
     Route: 048
     Dates: start: 20100412, end: 20100913
  3. RISPERDAL [Suspect]
     Active Substance: RISPERIDONE
     Indication: OPPOSITIONAL DEFIANT DISORDER
     Route: 048
     Dates: end: 2011
  4. INVEGA [Suspect]
     Active Substance: PALIPERIDONE
     Indication: ABNORMAL BEHAVIOUR
     Route: 048
     Dates: start: 20100203, end: 20100412
  5. INVEGA [Suspect]
     Active Substance: PALIPERIDONE
     Indication: IMPULSE-CONTROL DISORDER
     Route: 048
     Dates: start: 20100203, end: 20100412
  6. INVEGA [Suspect]
     Active Substance: PALIPERIDONE
     Indication: OPPOSITIONAL DEFIANT DISORDER
     Route: 048
     Dates: end: 2011
  7. RISPERDAL [Suspect]
     Active Substance: RISPERIDONE
     Indication: AFFECTIVE DISORDER
     Route: 048
     Dates: start: 20100915, end: 20101117
  8. RISPERDAL [Suspect]
     Active Substance: RISPERIDONE
     Indication: OPPOSITIONAL DEFIANT DISORDER
     Route: 048
     Dates: end: 20101217
  9. RISPERDAL [Suspect]
     Active Substance: RISPERIDONE
     Indication: ATTENTION DEFICIT/HYPERACTIVITY DISORDER
     Route: 048
     Dates: end: 2011
  10. RISPERIDONE. [Suspect]
     Active Substance: RISPERIDONE
     Indication: PRODUCT USED FOR UNKNOWN INDICATION
     Route: 048
  11. CLONIDINE. [Suspect]
     Active Substance: CLONIDINE
     Indication: IMPULSE-CONTROL DISORDER
     Route: 048
     Dates: end: 20100914
  12. INVEGA [Suspect]
     Active Substance: PALIPERIDONE
     Indication: ABNORMAL BEHAVIOUR
     Route: 048
     Dates: start: 20091208, end: 20100121
  13. INVEGA [Suspect]
     Active Substance: PALIPERIDONE
     Indication: IMPULSE-CONTROL DISORDER
     Route: 048
     Dates: start: 20091208, end: 20100121
  14. INVEGA [Suspect]
     Active Substance: PALIPERIDONE
     Indication: ABNORMAL BEHAVIOUR
     Route: 048
     Dates: end: 2011
  15. INVEGA [Suspect]
     Active Substance: PALIPERIDONE
     Indication: ATTENTION DEFICIT/HYPERACTIVITY DISORDER
     Route: 048
     Dates: end: 2011
  16. INVEGA [Suspect]
     Active Substance: PALIPERIDONE
     Indication: ANGER
     Route: 048
     Dates: end: 2011
  17. RISPERDAL [Suspect]
     Active Substance: RISPERIDONE
     Indication: IMPULSE-CONTROL DISORDER
     Route: 048
     Dates: start: 20100915, end: 20101117
  18. RISPERDAL [Suspect]
     Active Substance: RISPERIDONE
     Indication: OPPOSITIONAL DEFIANT DISORDER
     Route: 048
     Dates: start: 20100915, end: 20101117
  19. RISPERDAL [Suspect]
     Active Substance: RISPERIDONE
     Indication: IMPULSE-CONTROL DISORDER
     Route: 048
     Dates: end: 20101217
  20. INVEGA [Suspect]
     Active Substance: PALIPERIDONE
     Indication: ATTENTION DEFICIT/HYPERACTIVITY DISORDER
     Route: 048
     Dates: start: 20100412, end: 20100913
  21. RISPERDAL [Suspect]
     Active Substance: RISPERIDONE
     Indication: ANGER
     Route: 048
     Dates: start: 20100915, end: 20101117
  22. RISPERDAL [Suspect]
     Active Substance: RISPERIDONE
     Indication: AFFECTIVE DISORDER
     Route: 048
     Dates: end: 20101217
  23. CLONIDINE. [Suspect]
     Active Substance: CLONIDINE
     Indication: OPPOSITIONAL DEFIANT DISORDER
     Route: 048
     Dates: end: 20100914
  24. INVEGA [Suspect]
     Active Substance: PALIPERIDONE
     Indication: IMPULSE-CONTROL DISORDER
     Route: 048
     Dates: start: 20100412, end: 20100913
  25. RISPERDAL [Suspect]
     Active Substance: RISPERIDONE
     Indication: ANGER
     Route: 048
     Dates: end: 20101217
  26. INVEGA [Suspect]
     Active Substance: PALIPERIDONE
     Indication: ATTENTION DEFICIT/HYPERACTIVITY DISORDER
     Route: 048
     Dates: start: 20091208, end: 20100121
  27. INVEGA [Suspect]
     Active Substance: PALIPERIDONE
     Indication: OPPOSITIONAL DEFIANT DISORDER
     Route: 048
     Dates: start: 20091208, end: 20100121
  28. INVEGA [Suspect]
     Active Substance: PALIPERIDONE
     Indication: AFFECTIVE DISORDER
     Route: 048
     Dates: start: 20091208, end: 20100121
  29. INVEGA [Suspect]
     Active Substance: PALIPERIDONE
     Indication: ANGER
     Route: 048
     Dates: start: 20100412, end: 20100913
  30. INVEGA [Suspect]
     Active Substance: PALIPERIDONE
     Indication: AFFECTIVE DISORDER
     Route: 048
     Dates: end: 2011
  31. RISPERDAL [Suspect]
     Active Substance: RISPERIDONE
     Indication: AFFECTIVE DISORDER
     Route: 048
     Dates: end: 2011
  32. INVEGA [Suspect]
     Active Substance: PALIPERIDONE
     Indication: ANGER
     Route: 048
     Dates: start: 20091208, end: 20100121
  33. INVEGA [Suspect]
     Active Substance: PALIPERIDONE
     Indication: AFFECTIVE DISORDER
     Route: 048
     Dates: start: 20100203, end: 20100412
  34. RISPERDAL [Suspect]
     Active Substance: RISPERIDONE
     Indication: ATTENTION DEFICIT/HYPERACTIVITY DISORDER
     Route: 048
     Dates: end: 20101217
  35. RISPERDAL [Suspect]
     Active Substance: RISPERIDONE
     Indication: IMPULSE-CONTROL DISORDER
     Route: 048
     Dates: end: 2011
  36. CLONIDINE. [Suspect]
     Active Substance: CLONIDINE
     Indication: AFFECTIVE DISORDER
     Route: 048
     Dates: end: 20100914
  37. INVEGA [Suspect]
     Active Substance: PALIPERIDONE
     Indication: ATTENTION DEFICIT/HYPERACTIVITY DISORDER
     Route: 048
     Dates: start: 20100203, end: 20100412
  38. INVEGA [Suspect]
     Active Substance: PALIPERIDONE
     Indication: ANGER
     Route: 048
     Dates: start: 20100203, end: 20100412
  39. INVEGA [Suspect]
     Active Substance: PALIPERIDONE
     Indication: OPPOSITIONAL DEFIANT DISORDER
     Route: 048
     Dates: start: 20100203, end: 20100412
  40. INVEGA [Suspect]
     Active Substance: PALIPERIDONE
     Indication: AFFECTIVE DISORDER
     Route: 048
     Dates: start: 20100412, end: 20100913
  41. INVEGA [Suspect]
     Active Substance: PALIPERIDONE
     Indication: IMPULSE-CONTROL DISORDER
     Route: 048
     Dates: end: 2011
  42. RISPERDAL [Suspect]
     Active Substance: RISPERIDONE
     Indication: ATTENTION DEFICIT/HYPERACTIVITY DISORDER
     Route: 048
     Dates: start: 20100915, end: 20101117
  43. RISPERDAL [Suspect]
     Active Substance: RISPERIDONE
     Indication: ANGER
     Route: 048
     Dates: end: 2011
  44. CLONIDINE. [Suspect]
     Active Substance: CLONIDINE
     Indication: ABNORMAL BEHAVIOUR
     Route: 048
     Dates: end: 20100914

REACTIONS (6)
  - Drug prescribing error [Unknown]
  - Overweight [Unknown]
  - Off label use [Unknown]
  - Gynaecomastia [Unknown]
  - Sedation complication [Recovered/Resolved]
  - Product use in unapproved indication [Unknown]

NARRATIVE: CASE EVENT DATE: 2010
